FAERS Safety Report 25493828 (Version 1)
Quarter: 2025Q2

REPORT INFORMATION
  Report Type: Report from Study
  Country: US (occurrence: US)
  Receive Date: 20250630
  Receipt Date: 20250630
  Transmission Date: 20250717
  Serious: Yes (Other)
  Sender: BAYER HEALTHCARE PHARMACEUTICALS INC.
  Company Number: US-BAYER-2025A085295

PATIENT
  Sex: Female
  Weight: 91.156 kg

DRUGS (15)
  1. ADEMPAS [Suspect]
     Active Substance: RIOCIGUAT
     Indication: Pulmonary arterial hypertension
     Dates: start: 20250203
  2. ADEMPAS [Suspect]
     Active Substance: RIOCIGUAT
     Indication: Pulmonary arterial hypertension
     Dosage: 2 MG, TID
     Route: 048
  3. METOPROLOL [Suspect]
     Active Substance: METOPROLOL
  4. METOPROLOL [Suspect]
     Active Substance: METOPROLOL
  5. METOPROLOL [Suspect]
     Active Substance: METOPROLOL
  6. VITAMIN D3 [Concomitant]
     Active Substance: CHOLECALCIFEROL
  7. LASIX [Concomitant]
     Active Substance: FUROSEMIDE
  8. FLONASE ALLERGY RELIEF [Concomitant]
     Active Substance: FLUTICASONE PROPIONATE
  9. SIMETHICONE (DIMETHICONE) [Concomitant]
     Active Substance: DIMETHICONE
  10. ELIQUIS [Concomitant]
     Active Substance: APIXABAN
  11. ACETAMINOPHEN [Concomitant]
     Active Substance: ACETAMINOPHEN
  12. LATANOPROST [Concomitant]
     Active Substance: LATANOPROST
  13. SPIRONOLACTONE [Concomitant]
     Active Substance: SPIRONOLACTONE
  14. VITAMINS [Concomitant]
     Active Substance: VITAMINS
  15. ZYRTEC [Concomitant]
     Active Substance: CETIRIZINE HYDROCHLORIDE

REACTIONS (2)
  - Atrial fibrillation [None]
  - Asthenia [None]

NARRATIVE: CASE EVENT DATE: 20250101
